FAERS Safety Report 6063168-X (Version None)
Quarter: 2009Q1

REPORT INFORMATION
  Report Type: 
  Country: None (occurrence: None)
  Receive Date: 20090203
  Receipt Date: 20090123
  Transmission Date: 20090719
  Serious: Yes (Hospitalization, Other)
  Sender: FDA-Public Use
  Company Number: GB-JNJCH-2009002547

PATIENT
  Age: 70 Year
  Sex: Male

DRUGS (3)
  1. ASPIRIN [Suspect]
     Indication: ANTIPLATELET THERAPY
     Dosage: TEXT:UNSPECIFIED
     Route: 065
  2. CLOPIDOGREL [Suspect]
     Indication: ANTIPLATELET THERAPY
     Dosage: TEXT:UNSPECIFIED
     Route: 065
  3. WARFARIN SODIUM [Suspect]
     Indication: ANTIPLATELET THERAPY
     Dosage: TEXT:UNSPECIFIED
     Route: 065

REACTIONS (4)
  - ACUTE MYOCARDIAL INFARCTION [None]
  - ATRIAL FIBRILLATION [None]
  - GASTRIC ULCER HAEMORRHAGE [None]
  - THROMBOSIS IN DEVICE [None]
